FAERS Safety Report 7604247-2 (Version None)
Quarter: 2011Q3

REPORT INFORMATION
  Report Type: 
  Country: None (occurrence: None)
  Receive Date: 20110712
  Receipt Date: 20110706
  Transmission Date: 20111222
  Serious: Yes (Other)
  Sender: FDA-Public Use
  Company Number: JP-MERCK-1106USA04367

PATIENT
  Age: 51 Year
  Sex: Female

DRUGS (6)
  1. DECADRON [Suspect]
     Route: 048
     Dates: start: 20110626, end: 20110627
  2. TUBERCULIN NOS [Suspect]
     Route: 058
     Dates: start: 20110627
  3. CISPLATIN [Concomitant]
     Route: 041
  4. DEXAMETHASONE SODIUM PHOSPHATE [Concomitant]
     Route: 065
     Dates: start: 20110624
  5. EMEND [Concomitant]
     Route: 048
  6. ALOXI [Concomitant]
     Route: 042

REACTIONS (1)
  - ANAPHYLACTIC SHOCK [None]
